FAERS Safety Report 17843955 (Version 3)
Quarter: 2020Q4

REPORT INFORMATION
  Report Type: Report from Study
  Country: FR (occurrence: FR)
  Receive Date: 20200601
  Receipt Date: 20201204
  Transmission Date: 20210113
  Serious: No
  Sender: FDA-Public Use
  Company Number: FR-TAIHO ONCOLOGY  INC-IM-2020-00446

PATIENT
  Age: 71 Year
  Sex: Female
  Weight: 67.5 kg

DRUGS (12)
  1. ZARZIO [Concomitant]
     Active Substance: FILGRASTIM
     Indication: NEUTROPENIA
     Dosage: 30 MILLION IU, QD
     Route: 065
     Dates: start: 20200106
  2. LONSURF [Suspect]
     Active Substance: TIPIRACIL HYDROCHLORIDE\TRIFLURIDINE
     Indication: COLORECTAL CANCER METASTATIC
     Dosage: 35 MG/M2 BID, ON DAY 1-5 AND 8-12 OF EACH 28 DAYS CYCLE
     Route: 048
     Dates: start: 20200113
  3. NORMACOL [Concomitant]
     Active Substance: HERBALS\KARAYA GUM
     Indication: CONSTIPATION
     Dosage: UNK
     Route: 065
     Dates: start: 20200608, end: 20200608
  4. DEXERYL [Concomitant]
     Indication: SKIN TOXICITY
     Dosage: UNK, PRN
     Route: 065
     Dates: start: 20191106
  5. CALCIPARINE [Concomitant]
     Active Substance: HEPARIN CALCIUM
     Indication: THROMBOSIS
     Dosage: 7500 IU, BID
     Route: 065
     Dates: start: 20200622, end: 20200706
  6. ALPRAZOLAM. [Concomitant]
     Active Substance: ALPRAZOLAM
     Indication: ANXIETY
     Dosage: 0.25 MG, QD
     Route: 065
     Dates: start: 20200622, end: 20200706
  7. CANDESARTAN. [Concomitant]
     Active Substance: CANDESARTAN
     Indication: HYPERTENSION
     Dosage: 16/12,5MG, 1 DF, QD
     Route: 065
     Dates: start: 20200106
  8. MICROLAX [Concomitant]
     Indication: CONSTIPATION
     Dosage: UNK
     Route: 065
     Dates: start: 20200608, end: 20200608
  9. MOVICOL [Concomitant]
     Active Substance: POLYETHYLENE GLYCOL 3350\POTASSIUM CHLORIDE\SODIUM BICARBONATE\SODIUM CHLORIDE
     Indication: CONSTIPATION
     Dosage: 1 DF, QD
     Route: 065
     Dates: start: 20200406
  10. DOLIPRANE [Concomitant]
     Active Substance: ACETAMINOPHEN
     Indication: MYALGIA
     Dosage: 1 G, QD
     Route: 065
     Dates: start: 20200406
  11. BINOCRIT [Concomitant]
     Active Substance: ERYTHROPOIETIN
     Indication: ANAEMIA
     Dosage: 30000 IU, QD
     Route: 065
     Dates: start: 20200307
  12. DUPHALAC [Concomitant]
     Active Substance: LACTULOSE
     Indication: CONSTIPATION
     Route: 065

REACTIONS (3)
  - Neutropenia [Not Recovered/Not Resolved]
  - Anaemia [Recovered/Resolved]
  - Decreased appetite [Not Recovered/Not Resolved]

NARRATIVE: CASE EVENT DATE: 20200515
